FAERS Safety Report 8538995 (Version 4)
Quarter: 2013Q4

REPORT INFORMATION
  Report Type: Spontaneous
  Country: US (occurrence: None)
  Receive Date: 20120315
  Receipt Date: 20131226
  Transmission Date: 20140711
  Serious: Yes (Other)
  Sender: FDA-Public Use
  Company Number: PHHY2010US72714

PATIENT
  Age: 46 Year
  Sex: Male

DRUGS (4)
  1. GILENYA [Suspect]
     Indication: MULTIPLE SCLEROSIS
     Dosage: 0.5 MG, DAILY, ORAL
     Route: 048
     Dates: start: 201006
  2. FAMPRIDINE (FAMPRIDINE) [Concomitant]
  3. DIOVAN (VALSARTAN) [Concomitant]
  4. AMLODIPINE (AMLODIPINE) [Concomitant]

REACTIONS (9)
  - Sensation of heaviness [None]
  - Musculoskeletal stiffness [None]
  - Grip strength decreased [None]
  - Gait disturbance [None]
  - Fall [None]
  - Limb discomfort [None]
  - Mobility decreased [None]
  - Asthenia [None]
  - Drug ineffective [None]
